FAERS Safety Report 8183508-5 (Version None)
Quarter: 2012Q1

REPORT INFORMATION
  Report Type: 
  Country: None (occurrence: None)
  Receive Date: 20120305
  Receipt Date: 20120301
  Transmission Date: 20120608
  Serious: No
  Sender: FDA-Public Use
  Company Number: US-BAYER-2012-021082

PATIENT
  Age: 46 Year
  Sex: Male
  Weight: 68.027 kg

DRUGS (15)
  1. ESSENTIAL BALANCE [Concomitant]
     Route: 048
  2. L-CARNITINE [Concomitant]
     Dosage: 500 MG, UNK
     Route: 048
  3. VITAMIN D [Concomitant]
     Route: 048
  4. ALPHA LIPOIC ACID [Concomitant]
     Route: 048
  5. BETASERON [Suspect]
     Dosage: 0.25 MG, UNK
     Route: 058
  6. METHYL B12 [Concomitant]
  7. COQ10 [Concomitant]
     Dosage: 100 MG, UNK
     Route: 048
  8. THIAMINE HCL [Concomitant]
     Dosage: 50 MG, UNK
     Route: 048
  9. TAURINE [Concomitant]
     Dosage: 500 MG, UNK
     Route: 048
  10. LOVAZA [Concomitant]
     Dosage: 1000 MG, UNK
     Route: 048
  11. METHYL FOLATE [Concomitant]
  12. ACETYLCYSTEINE [Concomitant]
     Route: 048
  13. RIBOFLAVIN [Concomitant]
     Dosage: 50 MG, UNK
     Route: 048
  14. MULTI-VITAMIN [Concomitant]
     Route: 048
  15. MINERAL COMPLEX [Concomitant]
     Route: 048

REACTIONS (1)
  - FATIGUE [None]
